FAERS Safety Report 6454258-8 (Version None)
Quarter: 2009Q4

REPORT INFORMATION
  Report Type: 
  Country: None (occurrence: None)
  Receive Date: 20091117
  Receipt Date: 20091104
  Transmission Date: 20100525
  Serious: Yes (Other)
  Sender: FDA-Public Use
  Company Number: 2009AP003337

PATIENT
  Age: 56 Year
  Sex: Female

DRUGS (8)
  1. FLUVOXAMINE MALEATE [Suspect]
     Indication: DEPRESSION
     Dosage: 50 MG; QD; PO, 25 MG; ; PO
     Route: 048
     Dates: start: 20080801
  2. FLUVOXAMINE MALEATE [Suspect]
     Indication: OBSESSIVE-COMPULSIVE DISORDER
     Dosage: 50 MG; QD; PO, 25 MG; ; PO
     Route: 048
     Dates: start: 20080801
  3. FLUVOXAMINE MALEATE [Suspect]
     Indication: DEPRESSION
     Dosage: 50 MG; QD; PO, 25 MG; ; PO
     Route: 048
     Dates: start: 20090922
  4. FLUVOXAMINE MALEATE [Suspect]
     Indication: OBSESSIVE-COMPULSIVE DISORDER
     Dosage: 50 MG; QD; PO, 25 MG; ; PO
     Route: 048
     Dates: start: 20090922
  5. ESTRADIOL [Concomitant]
  6. STEROID ANTIBACTERIALS [Concomitant]
  7. PANTOPRAZOLE [Concomitant]
  8. CITALOPRAM HYDROBROMIDE [Concomitant]

REACTIONS (2)
  - HYPOAESTHESIA [None]
  - PARAESTHESIA [None]
